FAERS Safety Report 11808652 (Version 1)
Quarter: 2015Q4

REPORT INFORMATION
  Report Type: Spontaneous
  Country: US (occurrence: US)
  Receive Date: 20151207
  Receipt Date: 20151207
  Transmission Date: 20160305
  Serious: No
  Sender: FDA-Public Use
  Company Number: US-ROCHE-1540829

PATIENT
  Sex: Male

DRUGS (2)
  1. VALIUM [Suspect]
     Active Substance: DIAZEPAM
     Indication: DISORIENTATION
  2. VALIUM [Suspect]
     Active Substance: DIAZEPAM
     Indication: VERTIGO
     Dosage: TAKES PRN WHEN TRAVELLING
     Route: 048
     Dates: start: 1995

REACTIONS (1)
  - Drug ineffective [Unknown]
